FAERS Safety Report 10370589 (Version 1)
Quarter: 2014Q1

REPORT INFORMATION
  Report Type: Spontaneous
  Country: US (occurrence: None)
  Receive Date: 20140306
  Receipt Date: 20140306
  Transmission Date: 20141002
  Serious: Yes (Other)
  Sender: FDA-Public Use
  Company Number: 163-21880-13093856

PATIENT
  Age: 62 Year
  Sex: Male
  Weight: 83.01 kg

DRUGS (6)
  1. REVLIMID [Suspect]
     Indication: PLASMA CELL MYELOMA
     Dosage: 25 MG, 2 IN 1 WK, PO
     Route: 048
     Dates: start: 20120512, end: 20130924
  2. PROTONIX [Concomitant]
  3. NADOLOL (NADOLOL) [Concomitant]
  4. CALCIUM + VITAMIN D (LEKOVIT CA) [Concomitant]
  5. FOLIC ACID (FOLIC ACID) [Concomitant]
  6. ACYCLOVIR (ACICLOVIR) [Concomitant]

REACTIONS (1)
  - Plasma cell myeloma [None]
